FAERS Safety Report 8465284-1 (Version None)
Quarter: 2012Q2

REPORT INFORMATION
  Report Type: 
  Country: None (occurrence: None)
  Receive Date: 20120626
  Receipt Date: 20120622
  Transmission Date: 20120825
  Serious: Yes (Death, Other)
  Sender: FDA-Public Use
  Company Number: PHHY2012PT051196

PATIENT

DRUGS (4)
  1. MYCOPHENOLIC ACID [Suspect]
     Indication: IMMUNOSUPPRESSION
     Dosage: UNK UKN, UNK
  2. PREDNISONE [Concomitant]
     Dosage: UNK UKN, UNK
  3. CYCLOSPORINE [Suspect]
     Indication: IMMUNOSUPPRESSION
     Dosage: UNK UKN, UNK
  4. ANTI-THYMOCYTE GLOBULIN NOS [Concomitant]
     Dosage: UNK UKN, UNK

REACTIONS (2)
  - LIVER TRANSPLANT REJECTION [None]
  - SEPTIC SHOCK [None]
